FAERS Safety Report 9825112 (Version 1)
Quarter: 2014Q1

REPORT INFORMATION
  Report Type: Spontaneous
  Country: CA (occurrence: CA)
  Receive Date: 20140117
  Receipt Date: 20140117
  Transmission Date: 20141002
  Serious: Yes (Hospitalization)
  Sender: FDA-Public Use
  Company Number: CA-BAYER-2014-008087

PATIENT
  Age: 34 Year
  Sex: Female
  Weight: 55.7 kg

DRUGS (1)
  1. YAZ [Suspect]
     Route: 065

REACTIONS (2)
  - Ectopic pregnancy [Recovered/Resolved]
  - Pregnancy on oral contraceptive [Recovered/Resolved]
